FAERS Safety Report 10170269 (Version 1)
Quarter: 2014Q2

REPORT INFORMATION
  Report Type: Spontaneous
  Country: CA (occurrence: CA)
  Receive Date: 20140513
  Receipt Date: 20140513
  Transmission Date: 20141212
  Serious: Yes (Other)
  Sender: FDA-Public Use
  Company Number: CA-MYLANLABS-2014S1010125

PATIENT
  Age: 4 Year
  Sex: Male

DRUGS (1)
  1. EPIPEN [Suspect]

REACTIONS (2)
  - Accidental exposure to product by child [Recovered/Resolved]
  - Limb injury [Recovered/Resolved]
